FAERS Safety Report 24641631 (Version 1)
Quarter: 2024Q4

REPORT INFORMATION
  Report Type: Spontaneous
  Country: KP (occurrence: KP)
  Receive Date: 20241120
  Receipt Date: 20241120
  Transmission Date: 20250114
  Serious: Yes (Death, Other)
  Sender: AZURITY PHARMACEUTICALS
  Company Number: KP-AZURITY PHARMACEUTICALS, INC.-AZR202411-001077

PATIENT

DRUGS (2)
  1. METHOTREXATE [Suspect]
     Active Substance: METHOTREXATE
     Indication: Metastases to meninges
     Dosage: UNK
     Dates: start: 20180423
  2. PEMBROLIZUMAB [Concomitant]
     Active Substance: PEMBROLIZUMAB
     Indication: Product used for unknown indication
     Dosage: UNK
     Route: 065
     Dates: start: 20180509, end: 20180615

REACTIONS (2)
  - Leukoencephalopathy [Fatal]
  - Neurotoxicity [Fatal]

NARRATIVE: CASE EVENT DATE: 20180705
